FAERS Safety Report 8375568-3 (Version None)
Quarter: 2012Q2

REPORT INFORMATION
  Report Type: 
  Country: None (occurrence: None)
  Receive Date: 20120522
  Receipt Date: 20120511
  Transmission Date: 20120825
  Serious: Yes (Hospitalization)
  Sender: FDA-Public Use
  Company Number: JP-VERTEX PHARMACEUTICALS INC.-AE-2012-007249

PATIENT
  Age: 64 Year
  Sex: Male

DRUGS (16)
  1. TELAVIC (TELAPREVIR) [Suspect]
     Indication: HEPATITIS C
     Route: 048
     Dates: start: 20120208, end: 20120214
  2. REBAMIPIDE [Concomitant]
     Route: 048
     Dates: start: 20120208
  3. PEG-INTRON [Concomitant]
     Route: 051
     Dates: start: 20120229, end: 20120229
  4. RIBAVIRIN [Concomitant]
     Route: 048
     Dates: start: 20120405, end: 20120411
  5. PEG-INTRON [Concomitant]
     Route: 051
     Dates: start: 20120215, end: 20120222
  6. PEG-INTRON [Concomitant]
     Route: 051
     Dates: start: 20120322
  7. RIBAVIRIN [Concomitant]
     Route: 048
     Dates: start: 20120229, end: 20120404
  8. LORFENAMIN [Concomitant]
     Route: 048
     Dates: start: 20120208
  9. PRIMPERAN TAB [Concomitant]
     Route: 048
     Dates: start: 20120216
  10. RIBAVIRIN [Concomitant]
     Route: 048
     Dates: start: 20120208, end: 20120228
  11. PEG-INTRON [Concomitant]
     Indication: HEPATITIS C
     Route: 051
     Dates: start: 20120208, end: 20120215
  12. LORFENAMIN [Concomitant]
     Route: 048
     Dates: start: 20120208
  13. PEG-INTRON [Concomitant]
     Route: 051
     Dates: start: 20120308, end: 20120315
  14. REBAMIPIDE [Concomitant]
     Route: 048
     Dates: start: 20120208
  15. TELAVIC (TELAPREVIR) [Suspect]
     Route: 048
     Dates: start: 20120215, end: 20120418
  16. ALLOPURINOL [Concomitant]
     Route: 048
     Dates: start: 20120215

REACTIONS (2)
  - MALAISE [None]
  - RASH [None]
